FAERS Safety Report 17195962 (Version 5)
Quarter: 2020Q1

REPORT INFORMATION
  Report Type: Report from Study
  Country: KR (occurrence: KR)
  Receive Date: 20191224
  Receipt Date: 20200221
  Transmission Date: 20200409
  Serious: Yes (Hospitalization, Other)
  Sender: FDA-Public Use
  Company Number: KR-ACTELION-A-CH2019-199715

PATIENT
  Age: 39 Year
  Sex: Female
  Weight: 51 kg

DRUGS (10)
  1. UPTRAVI [Suspect]
     Active Substance: SELEXIPAG
     Dosage: 800 ?G, QD
     Route: 048
     Dates: start: 20180511, end: 20180527
  2. UPTRAVI [Suspect]
     Active Substance: SELEXIPAG
     Indication: PULMONARY ARTERIAL HYPERTENSION
     Dosage: 400 ?G, QD
     Route: 048
     Dates: start: 20180401, end: 20180509
  3. SILDENAFIL. [Concomitant]
     Active Substance: SILDENAFIL
     Indication: PULMONARY ARTERIAL HYPERTENSION
     Dosage: 40 MG, QD
     Route: 048
     Dates: start: 20171206
  4. UPTRAVI [Suspect]
     Active Substance: SELEXIPAG
     Dosage: 400 ?G, QD
     Route: 048
     Dates: start: 20180324, end: 20180327
  5. UPTRAVI [Suspect]
     Active Substance: SELEXIPAG
     Dosage: 200 ?G AM,400?G PM
     Route: 048
     Dates: start: 20180328, end: 20180328
  6. AMBRISENTAN [Concomitant]
     Active Substance: AMBRISENTAN
     Indication: PULMONARY ARTERIAL HYPERTENSION
     Dosage: 5 MG, QD
     Route: 048
     Dates: start: 20171120
  7. UPTRAVI [Suspect]
     Active Substance: SELEXIPAG
     Dosage: 800 ?G, QD
     Route: 048
     Dates: start: 20180329, end: 20180331
  8. UPTRAVI [Suspect]
     Active Substance: SELEXIPAG
     Dosage: 200 ?G AM,400?G PM
     Route: 048
     Dates: start: 20180510, end: 20180510
  9. UPTRAVI [Suspect]
     Active Substance: SELEXIPAG
     Dosage: 200 ?G, QPM
     Route: 048
     Dates: start: 20180323, end: 20180323
  10. UPTRAVI [Suspect]
     Active Substance: SELEXIPAG
     Dosage: 1200 ?G, QD
     Route: 048
     Dates: start: 20180529

REACTIONS (19)
  - Headache [Recovered/Resolved]
  - Nausea [Recovered/Resolved]
  - Menorrhagia [Unknown]
  - Paraesthesia [Recovered/Resolved]
  - Diarrhoea [Recovered/Resolved]
  - Menstruation irregular [Unknown]
  - Vaginal haemorrhage [Unknown]
  - Vomiting [Recovered/Resolved]
  - Dyspepsia [Recovered/Resolved]
  - Dizziness [Recovered/Resolved]
  - Condition aggravated [Recovered/Resolved]
  - Amenorrhoea [Unknown]
  - Anaemia [Unknown]
  - Transfusion [Unknown]
  - Rhinorrhoea [Recovered/Resolved]
  - Palpitations [Recovered/Resolved]
  - Pulmonary arterial hypertension [Recovered/Resolved]
  - Menstrual disorder [Unknown]
  - Chest pain [Recovered/Resolved]

NARRATIVE: CASE EVENT DATE: 20180412
